FAERS Safety Report 15106330 (Version 2)
Quarter: 2020Q3

REPORT INFORMATION
  Report Type: Report from Study
  Country: IT (occurrence: IT)
  Receive Date: 20180704
  Receipt Date: 20200902
  Transmission Date: 20201102
  Serious: Yes (Hospitalization)
  Sender: FDA-Public Use
  Company Number: IT-TEVA-774446ACC

PATIENT
  Age: 58 Year
  Sex: Female
  Weight: 75 kg

DRUGS (6)
  1. SOLDESAM [Concomitant]
     Active Substance: DEXAMETHASONE
     Indication: PROPHYLAXIS OF NAUSEA AND VOMITING
     Route: 042
     Dates: start: 20161027, end: 20170110
  2. CYCLOPHOSPHAMIDE. [Suspect]
     Active Substance: CYCLOPHOSPHAMIDE
     Indication: BREAST CANCER
     Route: 042
     Dates: start: 20161027, end: 20170110
  3. FOSAPREPITANT DIMEGLUMINE. [Concomitant]
     Active Substance: FOSAPREPITANT DIMEGLUMINE
     Indication: PROPHYLAXIS OF NAUSEA AND VOMITING
     Route: 042
     Dates: start: 20161027, end: 20170110
  4. EPIRUBICIN HYDROCHLORIDE. [Suspect]
     Active Substance: EPIRUBICIN HYDROCHLORIDE
     Indication: BREAST CANCER
     Route: 042
     Dates: start: 20161027, end: 20170110
  5. ZANTAC [Concomitant]
     Active Substance: RANITIDINE HYDROCHLORIDE
     Indication: PROPHYLAXIS OF NAUSEA AND VOMITING
     Route: 042
     Dates: start: 20161027, end: 20170110
  6. PALONOSETRON. [Concomitant]
     Active Substance: PALONOSETRON HYDROCHLORIDE
     Indication: PROPHYLAXIS OF NAUSEA AND VOMITING
     Route: 042
     Dates: start: 20161027, end: 20170110

REACTIONS (3)
  - Cardiac failure [Recovered/Resolved]
  - Dyspnoea [Unknown]
  - Cough [Unknown]

NARRATIVE: CASE EVENT DATE: 20170313
